FAERS Safety Report 7222191-X (Version None)
Quarter: 2011Q1

REPORT INFORMATION
  Report Type: 
  Country: None (occurrence: None)
  Receive Date: 20110103
  Receipt Date: 20101227
  Transmission Date: 20110831
  Serious: Yes (Death)
  Sender: FDA-Public Use
  Company Number: 2010SP016502

PATIENT
  Age: 66 Year
  Sex: Male

DRUGS (14)
  1. POLAPREZINC [Concomitant]
  2. DIMETHICONE [Concomitant]
  3. ZYPREXA [Concomitant]
  4. RABEPRAZOLE SODIUM [Concomitant]
  5. SEROQUEL [Suspect]
     Indication: DEPRESSION
     Dosage: 25 MG;QD;PO, 50 MG;QD;PO, 75 MG;QD;PO, 50 MG;QD;PO, 25 MG;QD;PO
     Route: 048
     Dates: start: 20100217, end: 20100224
  6. SEROQUEL [Suspect]
     Indication: DEPRESSION
     Dosage: 25 MG;QD;PO, 50 MG;QD;PO, 75 MG;QD;PO, 50 MG;QD;PO, 25 MG;QD;PO
     Route: 048
     Dates: start: 20100225
  7. SEROQUEL [Suspect]
     Indication: DEPRESSION
     Dosage: 25 MG;QD;PO, 50 MG;QD;PO, 75 MG;QD;PO, 50 MG;QD;PO, 25 MG;QD;PO
     Route: 048
     Dates: start: 20100204, end: 20100210
  8. SEROQUEL [Suspect]
     Indication: DEPRESSION
     Dosage: 25 MG;QD;PO, 50 MG;QD;PO, 75 MG;QD;PO, 50 MG;QD;PO, 25 MG;QD;PO
     Route: 048
     Dates: start: 20100211, end: 20100216
  9. SEROQUEL [Suspect]
     Indication: DEPRESSION
     Dosage: 25 MG;QD;PO, 50 MG;QD;PO, 75 MG;QD;PO, 50 MG;QD;PO, 25 MG;QD;PO
     Route: 048
     Dates: start: 20100201, end: 20100203
  10. NITRAZEPAM [Concomitant]
  11. MOSAPRIDE CITRATE [Concomitant]
  12. RISPERDAL [Concomitant]
  13. REFLEX (MIRTAZAPINE /01293201/) [Suspect]
     Indication: DEPRESSION
     Dosage: 15 MG;QD;PO, 30 MG;QD;PO
     Route: 048
     Dates: start: 20100217, end: 20100224
  14. REFLEX (MIRTAZAPINE /01293201/) [Suspect]
     Indication: DEPRESSION
     Dosage: 15 MG;QD;PO, 30 MG;QD;PO
     Route: 048
     Dates: start: 20100225

REACTIONS (1)
  - COMPLETED SUICIDE [None]
